FAERS Safety Report 7564149-7 (Version None)
Quarter: 2011Q2

REPORT INFORMATION
  Report Type: 
  Country: None (occurrence: None)
  Receive Date: 20110622
  Receipt Date: 20110620
  Transmission Date: 20111010
  Serious: Yes (Death, Other)
  Sender: FDA-Public Use
  Company Number: AU-ABBOTT-11P-008-0714784-00

PATIENT
  Sex: Male

DRUGS (1)
  1. LEUPROLIDE ACETATE [Suspect]
     Indication: PROSTATE CANCER
     Dosage: 4 MONTHLY
     Dates: start: 20100901, end: 20110101

REACTIONS (7)
  - METASTASES TO BONE [None]
  - SQUAMOUS CELL CARCINOMA [None]
  - PLEURAL EFFUSION [None]
  - DEEP VEIN THROMBOSIS [None]
  - PULMONARY MASS [None]
  - LUNG NEOPLASM MALIGNANT [None]
  - ILL-DEFINED DISORDER [None]
